FAERS Safety Report 5986549-9 (Version None)
Quarter: 2008Q4

REPORT INFORMATION
  Report Type: 
  Country: None (occurrence: None)
  Receive Date: 20081203
  Receipt Date: 20081124
  Transmission Date: 20090506
  Serious: Yes (Hospitalization)
  Sender: FDA-Public Use
  Company Number: ADE2008-0386

PATIENT
  Sex: Male

DRUGS (5)
  1. DIDANOSINE [Suspect]
     Indication: HIV INFECTION
  2. ZIDOVUDINE [Suspect]
     Indication: HIV INFECTION
     Dosage: TRANSPLACENT
     Route: 064
  3. ZIDOVUDINE [Suspect]
     Indication: HIV INFECTION
  4. LAMIVUDINE [Suspect]
     Indication: HIV INFECTION
  5. NEVIRAPINE [Suspect]
     Indication: HIV INFECTION

REACTIONS (2)
  - MATERNAL DRUGS AFFECTING FOETUS [None]
  - PINEALOBLASTOMA [None]
